FAERS Safety Report 7361627-0 (Version None)
Quarter: 2011Q1

REPORT INFORMATION
  Report Type: 
  Country: None (occurrence: None)
  Receive Date: 20110309
  Receipt Date: 20110226
  Transmission Date: 20110831
  Serious: Yes (Other)
  Sender: FDA-Public Use
  Company Number: 2011AP000369

PATIENT
  Age: 10 Year
  Sex: Male

DRUGS (1)
  1. FLUTICASONE PROPIONATE [Suspect]
     Indication: PRODUCT USED FOR UNKNOWN INDICATION
     Dosage: 88 UG;BID; 220 UG;BID;

REACTIONS (4)
  - CUSHING'S SYNDROME [None]
  - ADRENAL INSUFFICIENCY [None]
  - IATROGENIC INJURY [None]
  - GROWTH RETARDATION [None]
